FAERS Safety Report 25852805 (Version 1)
Quarter: 2025Q3

REPORT INFORMATION
  Report Type: Spontaneous
  Country: CN (occurrence: CN)
  Receive Date: 20250926
  Receipt Date: 20250926
  Transmission Date: 20251021
  Serious: Yes (Other)
  Sender: PFIZER
  Company Number: CN-TAKEDA-2025TUS083324

PATIENT
  Age: 88 Year
  Sex: Male
  Weight: 65 kg

DRUGS (2)
  1. PANTOPRAZOLE [Suspect]
     Active Substance: PANTOPRAZOLE
     Indication: Upper gastrointestinal haemorrhage
     Dosage: 40 MG, 3X/DAY
     Route: 041
     Dates: start: 20250909, end: 20250910
  2. PANTOPRAZOLE [Suspect]
     Active Substance: PANTOPRAZOLE
     Indication: Prophylaxis

REACTIONS (4)
  - Delirium [Recovering/Resolving]
  - Agitation [Recovering/Resolving]
  - Disorganised speech [Recovering/Resolving]
  - Off label use [Unknown]

NARRATIVE: CASE EVENT DATE: 20250910
